FAERS Safety Report 10734386 (Version 3)
Quarter: 2015Q3

REPORT INFORMATION
  Report Type: Report from Study
  Country: DE (occurrence: DE)
  Receive Date: 20150123
  Receipt Date: 20150731
  Transmission Date: 20151125
  Serious: Yes (Death, Hospitalization)
  Sender: FDA-Public Use
  Company Number: DE-AMGEN-DEUSP2015005216

PATIENT
  Age: 63 Year
  Sex: Male

DRUGS (1)
  1. CARFILZOMIB [Suspect]
     Active Substance: CARFILZOMIB
     Indication: PRODUCT USED FOR UNKNOWN INDICATION
     Dosage: UNK
     Route: 065
     Dates: start: 20150115

REACTIONS (3)
  - Pneumonia [Fatal]
  - Respiratory failure [Fatal]
  - Pyrexia [Recovering/Resolving]

NARRATIVE: CASE EVENT DATE: 20150115
